FAERS Safety Report 13291719 (Version 2)
Quarter: 2017Q1

REPORT INFORMATION
  Report Type: Spontaneous
  Country: HU (occurrence: HU)
  Receive Date: 20170303
  Receipt Date: 20170315
  Transmission Date: 20170428
  Serious: Yes (Death, Other)
  Sender: FDA-Public Use
  Company Number: HU-ROCHE-1900277

PATIENT
  Age: 59 Year
  Sex: Male

DRUGS (1)
  1. ACTILYSE [Suspect]
     Active Substance: ALTEPLASE
     Indication: THROMBOLYSIS
     Route: 042

REACTIONS (8)
  - Oxygen saturation decreased [Unknown]
  - Fibrin D dimer increased [Unknown]
  - Aortic dissection [Fatal]
  - Blood lactate dehydrogenase increased [Unknown]
  - Restlessness [Unknown]
  - Off label use [Fatal]
  - Back pain [Unknown]
  - Dyspnoea [Unknown]
